FAERS Safety Report 12295791 (Version 1)
Quarter: 2016Q2

REPORT INFORMATION
  Report Type: Spontaneous
  Country: US (occurrence: US)
  Receive Date: 20160422
  Receipt Date: 20160422
  Transmission Date: 20160815
  Serious: No
  Sender: FDA-Public Use
  Company Number: US-PURDUE-USA-2016-0129049

PATIENT
  Sex: Male

DRUGS (1)
  1. OXYCONTIN [Suspect]
     Active Substance: OXYCODONE HYDROCHLORIDE
     Indication: PAIN
     Dosage: 2X80 MG, Q12H
     Route: 048
     Dates: start: 1996

REACTIONS (3)
  - Drug effect decreased [Recovered/Resolved]
  - Pain [Recovered/Resolved]
  - Nervousness [Recovered/Resolved]
